FAERS Safety Report 5670241-4 (Version None)
Quarter: 2008Q1

REPORT INFORMATION
  Report Type: 
  Country: None (occurrence: None)
  Receive Date: 20080318
  Receipt Date: 20080306
  Transmission Date: 20080703
  Serious: Yes (Death)
  Sender: FDA-Public Use
  Company Number: GB-RANBAXY-2008RR-13547

PATIENT

DRUGS (1)
  1. ACETAMINOPHEN [Suspect]
     Route: 048

REACTIONS (3)
  - ACUTE HEPATIC FAILURE [None]
  - HAEMORRHAGE INTRACRANIAL [None]
  - OVERDOSE [None]
